FAERS Safety Report 14199833 (Version 2)
Quarter: 2017Q4

REPORT INFORMATION
  Report Type: Spontaneous
  Country: US (occurrence: MX)
  Receive Date: 20171117
  Receipt Date: 20171208
  Transmission Date: 20180321
  Serious: Yes (Hospitalization)
  Sender: FDA-Public Use
  Company Number: US-SUNOVION-2017SUN004968

PATIENT
  Sex: Male
  Weight: 63 kg

DRUGS (1)
  1. INDACATEROL AND GLYCOPYRROLATE [Suspect]
     Active Substance: GLYCOPYRROLATE\INDACATEROL MALEATE
     Indication: PRODUCTIVE COUGH
     Dosage: 1 DF, QD
     Route: 048
     Dates: start: 2012, end: 201707

REACTIONS (3)
  - Product use in unapproved indication [Recovered/Resolved]
  - Arthropathy [Not Recovered/Not Resolved]
  - Incorrect route of drug administration [Unknown]

NARRATIVE: CASE EVENT DATE: 2012
